FAERS Safety Report 4679785-5 (Version None)
Quarter: 2005Q2

REPORT INFORMATION
  Report Type: 
  Country: None (occurrence: None)
  Receive Date: 20050602
  Receipt Date: 20050413
  Transmission Date: 20051028
  Serious: Yes (Death, Hospitalization, Other)
  Sender: FDA-Public Use
  Company Number: PHBS2005BE05271

PATIENT
  Age: 76 Year
  Sex: Female

DRUGS (12)
  1. AREDIA [Suspect]
     Indication: METASTASES TO BONE
     Dosage: 90 MG, TIW
     Route: 042
     Dates: start: 20010309, end: 20020830
  2. NOLVADEX [Concomitant]
     Dosage: UNK, UNK
     Route: 065
     Dates: start: 20010309, end: 20011101
  3. RADIOTHERAPY [Concomitant]
     Dosage: D8 TILL S1
     Route: 065
  4. AROMASIN [Concomitant]
     Dosage: UNK, UNK
     Route: 065
     Dates: start: 20011101, end: 20030601
  5. FARLUTAL [Concomitant]
     Route: 065
     Dates: start: 20030601, end: 20030801
  6. ARIMIDEX [Concomitant]
     Route: 065
     Dates: start: 20030801
  7. CYCLOPHOSPHAMIDE + 5-FU + METHOTREXATE [Concomitant]
     Dosage: 3 CYCLES
     Route: 065
     Dates: start: 20031001, end: 20031201
  8. FARMORUBICINE [Concomitant]
     Dosage: LOW DOSES/WEEK
     Route: 065
  9. FLUOROURACIL [Concomitant]
     Route: 065
     Dates: start: 20050110
  10. ZOMETA [Suspect]
     Dosage: UNK, QMO
     Route: 042
     Dates: start: 20020927, end: 20030606
  11. ZOMETA [Suspect]
     Dosage: EVERY 8 WEEKS 1 SINGLE DOSE
     Route: 042
     Dates: start: 20030704, end: 20030903
  12. ZOMETA [Suspect]
     Route: 042
     Dates: start: 20050110, end: 20050307

REACTIONS (13)
  - ANAEMIA [None]
  - BLOOD CREATININE INCREASED [None]
  - BONE SWELLING [None]
  - DEEP VEIN THROMBOSIS [None]
  - ERYTHEMA [None]
  - GENERAL PHYSICAL CONDITION ABNORMAL [None]
  - MALIGNANT NEOPLASM PROGRESSION [None]
  - METASTASES TO LIVER [None]
  - OSTEONECROSIS [None]
  - PAIN IN JAW [None]
  - PULMONARY OEDEMA [None]
  - SEPSIS [None]
  - SUBCLAVIAN VEIN THROMBOSIS [None]
